FAERS Safety Report 10104162 (Version 2)
Quarter: 2014Q4

REPORT INFORMATION
  Report Type: Other
  Country: US (occurrence: US)
  Receive Date: 20140424
  Receipt Date: 20141031
  Transmission Date: 20150528
  Serious: Yes (Hospitalization, Other)
  Sender: FDA-Public Use
  Company Number: US-GSKPPD-2014GSK005307

PATIENT
  Age: 59 Year
  Sex: Male

DRUGS (2)
  1. AVAPRO [Concomitant]
     Active Substance: IRBESARTAN
  2. AVANDIA [Suspect]
     Active Substance: ROSIGLITAZONE MALEATE
     Indication: DIABETES MELLITUS
     Dosage: AVANDIA WAS NOT LISTED AMONG THE PATIENT^S  RECORDS REVIEWED.
     Route: 048

REACTIONS (2)
  - Coronary arterial stent insertion [Unknown]
  - Transient ischaemic attack [Recovered/Resolved]

NARRATIVE: CASE EVENT DATE: 20071021
